FAERS Safety Report 19089506 (Version 1)
Quarter: 2021Q2

REPORT INFORMATION
  Report Type: Spontaneous
  Country: US (occurrence: US)
  Receive Date: 20210403
  Receipt Date: 20210403
  Transmission Date: 20210717
  Serious: Yes (Other)
  Sender: FDA-Public Use
  Company Number: US-CIPLA LTD.-2021US02563

PATIENT

DRUGS (12)
  1. ETOPOSIDE. [Suspect]
     Active Substance: ETOPOSIDE
     Indication: RETINOBLASTOMA
     Dosage: 71.4 MG, UNK, ON DAY?1 AND DAY?2 OF CYCLE 1
     Route: 042
  2. ETOPOSIDE. [Suspect]
     Active Substance: ETOPOSIDE
     Dosage: 70.8 MG, UNK, ON DAY?1 AND DAY?2 OF CYCLE? 2 AND CYCLE? 3
     Route: 042
  3. ETOPOSIDE. [Suspect]
     Active Substance: ETOPOSIDE
     Dosage: 77.4 MG, UNK, ON DAY?1 AND DAY?2 OF CYCLE?6
     Route: 042
  4. CARBOPLATIN. [Suspect]
     Active Substance: CARBOPLATIN
     Indication: RETINOBLASTOMA
     Dosage: 166.6 MG, UNK, ON DAY?1 AND DAY?2 OF CYCLE?1
     Route: 042
  5. ETOPOSIDE. [Suspect]
     Active Substance: ETOPOSIDE
     Dosage: 74.4 MG, UNK, ON DAY?1 AND DAY?2 OF CYCLE? 4
     Route: 042
  6. VINCRISTINE [Suspect]
     Active Substance: VINCRISTINE
     Dosage: 0.7 MG, UNK, ON DAY?1 OF CYCLE 5
     Route: 042
  7. CARBOPLATIN. [Suspect]
     Active Substance: CARBOPLATIN
     Dosage: 180.6 MG, UNK, ON ON DAY?1 AND DAY?2 OF CYCLE?6
     Route: 042
  8. CARBOPLATIN. [Suspect]
     Active Substance: CARBOPLATIN
     Dosage: 165.2 MG, UNK, ON DAY?1 AND DAY?2 OF CYCLE? 2 AND CYCLE? 3
     Route: 042
  9. CARBOPLATIN. [Suspect]
     Active Substance: CARBOPLATIN
     Dosage: 173.6 MG, UNK, ON DAY 1 AND DAY?2 OF CYCLE?4
     Route: 042
  10. CARBOPLATIN. [Suspect]
     Active Substance: CARBOPLATIN
     Dosage: 191.8 MG, UNK, ON DAY?1 AND DAY?2 OF CYCLE 5
     Route: 042
  11. ETOPOSIDE. [Suspect]
     Active Substance: ETOPOSIDE
     Dosage: 82.2 MG, UNK, ON DAY?1 AND DAY?2 OF CYCLE?5
     Route: 042
  12. VINCRISTINE [Suspect]
     Active Substance: VINCRISTINE
     Indication: RETINOBLASTOMA
     Dosage: 0.6 MG, UNK, ON DAY?1 FROM CYCLE ?1 TO CYCLE?4 AND CYCLE?6
     Route: 042

REACTIONS (4)
  - Neutropenia [Unknown]
  - Cytopenia [Unknown]
  - Toxicity to various agents [Unknown]
  - Anaemia [Unknown]
